FAERS Safety Report 4292282-4 (Version None)
Quarter: 2004Q1

REPORT INFORMATION
  Report Type: 
  Country: None (occurrence: None)
  Receive Date: 20040211
  Receipt Date: 20030207
  Transmission Date: 20041129
  Serious: Yes (Hospitalization)
  Sender: FDA-Public Use
  Company Number: AU-ROCHE-331412

PATIENT
  Age: 29 Year
  Sex: Female
  Weight: 74.3 kg

DRUGS (14)
  1. DACLIZUMAB [Suspect]
     Route: 042
     Dates: start: 20020925, end: 20020925
  2. DACLIZUMAB [Suspect]
     Route: 042
     Dates: start: 20021009, end: 20021119
  3. MYCOPHENOLATE MOFETIL [Suspect]
     Route: 048
     Dates: start: 20020925
  4. METHYLPREDNISOLONE [Suspect]
     Dosage: 5-DAY COURSE
     Route: 065
     Dates: start: 20030728
  5. PREDNISONE [Concomitant]
     Dates: start: 20030115
  6. BACTRIM [Concomitant]
     Dates: start: 20020926
  7. LIPITOR [Concomitant]
     Dates: start: 20030425
  8. CALCITRIOL [Concomitant]
     Dates: start: 20020925
  9. NEXIUM [Concomitant]
     Dates: start: 20021011
  10. VALGANCICLOVIR [Concomitant]
     Dates: start: 20030430
  11. TACROLIMUS [Concomitant]
     Dates: start: 20030712
  12. METOPROLOL [Concomitant]
     Dates: start: 20030705
  13. LASIX [Concomitant]
     Dates: start: 20030712, end: 20030731
  14. AMLODIPINE [Concomitant]
     Dates: start: 20030705

REACTIONS (6)
  - ANGLE CLOSURE GLAUCOMA [None]
  - BLOOD CREATININE INCREASED [None]
  - CYTOMEGALOVIRUS INFECTION [None]
  - HYPERTENSION [None]
  - PYREXIA [None]
  - VIRAL INFECTION [None]
